FAERS Safety Report 7368608-1 (Version None)
Quarter: 2011Q1

REPORT INFORMATION
  Report Type: 
  Country: None (occurrence: None)
  Receive Date: 20110314
  Receipt Date: 20110302
  Transmission Date: 20110831
  Serious: Yes (Death, Hospitalization)
  Sender: FDA-Public Use
  Company Number: FK201100365

PATIENT
  Age: 60 Year
  Sex: Male

DRUGS (1)
  1. DEXAMETHASONE SODIUM PHOSPHATE INJECTION, USP (DEXAMETHASONE SODIUM PH [Suspect]
     Indication: CHEMOTHERAPY
     Dosage: 40 MG, PER DAY, ON DAYS 1-4, 9-12 AND 17-20,

REACTIONS (6)
  - AMOEBIC COLITIS [None]
  - GASTROINTESTINAL HAEMORRHAGE [None]
  - PYREXIA [None]
  - CYTOMEGALOVIRUS COLITIS [None]
  - DIARRHOEA HAEMORRHAGIC [None]
  - DEHYDRATION [None]
